FAERS Safety Report 9503249 (Version 2)
Quarter: 2013Q4

REPORT INFORMATION
  Report Type: Spontaneous
  Country: US (occurrence: US)
  Receive Date: 20130906
  Receipt Date: 20131009
  Transmission Date: 20140711
  Serious: Yes (Other)
  Sender: FDA-Public Use
  Company Number: US-BAYER-2013-107589

PATIENT
  Age: 32 Year
  Sex: Female
  Weight: 81.63 kg

DRUGS (1)
  1. MIRENA [Suspect]
     Indication: CONTRACEPTION
     Dosage: 20 MCG/24HR, CONT
     Route: 015
     Dates: start: 20130529

REACTIONS (13)
  - Amenorrhoea [None]
  - Cervicitis [None]
  - Device dislocation [None]
  - Pelvic inflammatory disease [None]
  - Vaginal discharge [None]
  - Pelvic pain [None]
  - Abdominal pain [None]
  - Back pain [None]
  - Haemorrhagic ovarian cyst [None]
  - Adnexa uteri pain [None]
  - Haematuria [None]
  - Vulvovaginal discomfort [None]
  - Micturition urgency [None]
